FAERS Safety Report 9622150 (Version 1)
Quarter: 2013Q4

REPORT INFORMATION
  Report Type: Spontaneous
  Country: US (occurrence: US)
  Receive Date: 20131015
  Receipt Date: 20131015
  Transmission Date: 20140711
  Serious: Yes (Other)
  Sender: FDA-Public Use
  Company Number: US-NAPPMUNDI-USA-2012-0085575

PATIENT
  Age: 64 Year
  Sex: Female

DRUGS (1)
  1. BUTRANS [Suspect]
     Indication: PAIN
     Dosage: 20 MCG/HR, UNK
     Route: 062
     Dates: start: 20120406, end: 20120410

REACTIONS (5)
  - Hallucination [Unknown]
  - Dyskinesia [Unknown]
  - Feeling hot [Unknown]
  - Drug ineffective [Unknown]
  - Headache [Unknown]
